FAERS Safety Report 8352577-1 (Version None)
Quarter: 2012Q2

REPORT INFORMATION
  Report Type: 
  Country: None (occurrence: None)
  Receive Date: 20120511
  Receipt Date: 20120214
  Transmission Date: 20120825
  Serious: No
  Sender: FDA-Public Use
  Company Number: US-COVIDIEN/TYCO HEALTHCARE/MALLINCKRODT-T201200618

PATIENT
  Age: 55 Year
  Sex: Male

DRUGS (2)
  1. FENTANYL-100 [Suspect]
     Indication: PAIN
     Dosage: 75 UG/HR, UNK
  2. OXYCODONE AND ACETAMINOPHEN [Concomitant]

REACTIONS (2)
  - PAIN [None]
  - DRUG EFFECT DECREASED [None]
